FAERS Safety Report 16266981 (Version 1)
Quarter: 2019Q2

REPORT INFORMATION
  Report Type: Spontaneous
  Country: US (occurrence: US)
  Receive Date: 20190502
  Receipt Date: 20190502
  Transmission Date: 20190711
  Serious: No
  Sender: FDA-Public Use
  Company Number: US-SA-2019SA120146

PATIENT
  Sex: Female

DRUGS (1)
  1. PRALUENT [Suspect]
     Active Substance: ALIROCUMAB
     Indication: HYPERLIPIDAEMIA
     Dosage: 75 MG, QOW
     Route: 058
     Dates: start: 20190222, end: 20190425

REACTIONS (5)
  - Feeling cold [Unknown]
  - Bone pain [Unknown]
  - Muscle spasms [Unknown]
  - Tremor [Unknown]
  - Myalgia [Unknown]

NARRATIVE: CASE EVENT DATE: 2019
